FAERS Safety Report 8815931 (Version 1)
Quarter: 2012Q4

REPORT INFORMATION
  Report Type: 
  Country: US (occurrence: US)
  Receive Date: 20120928
  Receipt Date: 20120928
  Transmission Date: 20130627
  Serious: Yes (Other)
  Sender: FDA-Public Use
  Company Number: US-ROCHE-1065780

PATIENT
  Age: 16 None
  Sex: Male
  Weight: 74.91 kg

DRUGS (2)
  1. ACCUTANE [Suspect]
     Indication: ACNE
     Route: 048
     Dates: start: 19970314
  2. ACCUTANE [Suspect]
     Route: 048
     Dates: start: 19970423, end: 199707

REACTIONS (9)
  - Crohn^s disease [Not Recovered/Not Resolved]
  - Inflammatory bowel disease [Unknown]
  - Anal fissure [Unknown]
  - Depression [Unknown]
  - Colitis ulcerative [Unknown]
  - Acne [Unknown]
  - Chapped lips [Unknown]
  - Dry skin [Unknown]
  - Rash [Unknown]
